FAERS Safety Report 24669850 (Version 1)
Quarter: 2024Q4

REPORT INFORMATION
  Report Type: Spontaneous
  Country: US (occurrence: US)
  Receive Date: 20241127
  Receipt Date: 20241127
  Transmission Date: 20250115
  Serious: Yes (Other)
  Sender: PFIZER
  Company Number: US-PFIZER INC-PV202400152435

PATIENT
  Sex: Female

DRUGS (5)
  1. IBRANCE [Suspect]
     Active Substance: PALBOCICLIB
     Indication: Breast cancer metastatic
     Dosage: 100 MG, CYCLICAL, TAKE 1 TABLET ONCE A DAY X 21 DAYS THEN 7 DAYS OFF
     Route: 048
     Dates: start: 20200124
  2. IBRANCE [Suspect]
     Active Substance: PALBOCICLIB
     Dosage: 100 MG, CYCLICAL, TAKE 1 TABLET ONCE A DAY X 21 DAYS THEN 7 DAYS OFF
     Route: 048
     Dates: start: 20201224
  3. IBRANCE [Suspect]
     Active Substance: PALBOCICLIB
     Dosage: 125 MG BY MOUTH DAILY FOR 21 DAYS ON, THEN 7 DAYS OFF
     Route: 048
  4. XGEVA [Suspect]
     Active Substance: DENOSUMAB
     Dosage: UNK UNK, EVERY 3 MONTHS
     Dates: start: 202001
  5. LETROZOLE [Suspect]
     Active Substance: LETROZOLE
     Dosage: UNK
     Dates: start: 201912

REACTIONS (11)
  - Chronic kidney disease [Unknown]
  - Hypertension [Recovering/Resolving]
  - Microcytic anaemia [Unknown]
  - Oedema [Unknown]
  - Nasopharyngitis [Recovering/Resolving]
  - Rhinovirus infection [Recovering/Resolving]
  - Nasal congestion [Recovering/Resolving]
  - Fatigue [Recovering/Resolving]
  - Anaemia [Recovering/Resolving]
  - Cough [Recovering/Resolving]
  - Anxiety [Unknown]
